FAERS Safety Report 5214947-X (Version None)
Quarter: 2007Q1

REPORT INFORMATION
  Report Type: 
  Country: None (occurrence: None)
  Receive Date: 20070122
  Receipt Date: 20070112
  Transmission Date: 20070707
  Serious: Yes (Other)
  Sender: FDA-Public Use
  Company Number: JP-PFIZER INC-2006148610

PATIENT
  Sex: Female

DRUGS (4)
  1. SOLANAX [Suspect]
     Route: 048
  2. SEDES G [Suspect]
     Dosage: DAILY DOSE:1GRAM-FREQ:AS NEEDED
     Route: 048
  3. CEREKINON [Concomitant]
     Route: 048
  4. EURODIN [Concomitant]
     Route: 048
     Dates: start: 20050927

REACTIONS (1)
  - VISUAL BRIGHTNESS [None]
